FAERS Safety Report 4770731-2 (Version None)
Quarter: 2005Q3

REPORT INFORMATION
  Report Type: 
  Country: None (occurrence: None)
  Receive Date: 20050914
  Receipt Date: 20050914
  Transmission Date: 20060218
  Serious: Yes (Life-Threatening, Hospitalization)
  Sender: FDA-Public Use
  Company Number: None

PATIENT
  Age: 77 Year
  Sex: Female

DRUGS (9)
  1. SYNTHROID [Suspect]
     Indication: HYPOTHYROIDISM
     Dosage: 100 MCG DAILY PO
     Route: 048
  2. AUGMENTIN [Concomitant]
  3. ROSIGLITAZON [Concomitant]
  4. HALOPERIDOL [Concomitant]
  5. DILTIAZEM [Concomitant]
  6. ACETAMINOPHEN [Concomitant]
  7. MICRONASE [Concomitant]
  8. LANSOPRAZOLE [Concomitant]
  9. INSULIN [Concomitant]

REACTIONS (1)
  - HYPONATRAEMIA [None]
